FAERS Safety Report 9931161 (Version 6)
Quarter: 2014Q2

REPORT INFORMATION
  Report Type: Spontaneous
  Country: US (occurrence: US)
  Receive Date: 20140228
  Receipt Date: 20140626
  Transmission Date: 20141212
  Serious: Yes (Hospitalization, Other)
  Sender: FDA-Public Use
  Company Number: US-JNJFOC-20140216318

PATIENT
  Age: 28 Year
  Sex: Female
  Weight: 41.28 kg

DRUGS (5)
  1. TYLENOL REGULAR STRENGTH 325 MG [Suspect]
     Route: 048
  2. TYLENOL REGULAR STRENGTH 325 MG [Suspect]
     Indication: TOOTHACHE
     Route: 048
     Dates: start: 20111217, end: 20111227
  3. ACETAMINOPHEN WITH CODEINE 3 [Suspect]
     Route: 065
  4. ACETAMINOPHEN WITH CODEINE 3 [Suspect]
     Indication: TOOTHACHE
     Route: 065
     Dates: start: 20111217, end: 20111227
  5. LIDOCAINE [Concomitant]
     Indication: TOOTHACHE
     Route: 065
     Dates: start: 201112

REACTIONS (3)
  - Hepatitis acute [Recovered/Resolved]
  - Hepatic enzyme increased [Recovered/Resolved]
  - Toxicity to various agents [Recovered/Resolved]
